FAERS Safety Report 9238909 (Version 1)
Quarter: 2013Q2

REPORT INFORMATION
  Report Type: Spontaneous
  Country: GB (occurrence: GB)
  Receive Date: 20130418
  Receipt Date: 20130418
  Transmission Date: 20140414
  Serious: Yes (Other)
  Sender: FDA-Public Use
  Company Number: GB-ROCHE-1215868

PATIENT
  Age: 60 Year
  Sex: Male

DRUGS (1)
  1. ACTILYSE [Suspect]
     Indication: ISCHAEMIC STROKE
     Route: 042
     Dates: start: 20130402, end: 20130402

REACTIONS (4)
  - Angioedema [Recovered/Resolved]
  - Pruritus [Unknown]
  - Swollen tongue [Unknown]
  - Wheezing [Unknown]
